FAERS Safety Report 5270149-2 (Version None)
Quarter: 2007Q1

REPORT INFORMATION
  Report Type: 
  Country: None (occurrence: None)
  Receive Date: 20061213
  Receipt Date: 20060829
  Transmission Date: 20070707
  Serious: Yes (Other)
  Sender: FDA-Public Use
  Company Number: 2003UW10983

PATIENT
  Age: 74 Year
  Sex: Female
  Weight: 64.4108 kg

DRUGS (5)
  1. IRESSA [Suspect]
     Indication: NON-SMALL CELL LUNG CANCER
  2. SYNTHROID [Concomitant]
  3. HYDROCHLOROTHIAZIDE [Concomitant]
  4. VITAMINS [Concomitant]
  5. ASPIRIN [Concomitant]

REACTIONS (7)
  - DIARRHOEA [None]
  - EYELID IRRITATION [None]
  - FINGER DEFORMITY [None]
  - HAEMORRHAGE [None]
  - ILL-DEFINED DISORDER [None]
  - MUSCLE SPASMS [None]
  - RASH [None]
